FAERS Safety Report 15689624 (Version 1)
Quarter: 2018Q4

REPORT INFORMATION
  Report Type: Spontaneous
  Country: TN (occurrence: TN)
  Receive Date: 20181205
  Receipt Date: 20181205
  Transmission Date: 20190205
  Serious: Yes (Life-Threatening, Hospitalization, Other)
  Sender: FDA-Public Use
  Company Number: TN-GLAXOSMITHKLINE-TN2018218208

PATIENT
  Age: 53 Year
  Sex: Female

DRUGS (14)
  1. PARACETAMOL [Suspect]
     Active Substance: ACETAMINOPHEN
     Indication: COUGH
  2. MEFENAMIC ACID. [Suspect]
     Active Substance: MEFENAMIC ACID
     Indication: PYREXIA
     Dosage: DOSAGE FORM: UNSPECIFIED
     Route: 065
     Dates: start: 2018, end: 2018
  3. ZYRTEC [Suspect]
     Active Substance: CETIRIZINE HYDROCHLORIDE
     Indication: LYMPHADENOPATHY
  4. ZYRTEC [Suspect]
     Active Substance: CETIRIZINE HYDROCHLORIDE
     Indication: COUGH
  5. MEFENAMIC ACID. [Suspect]
     Active Substance: MEFENAMIC ACID
     Indication: LYMPHADENOPATHY
  6. PARACETAMOL [Suspect]
     Active Substance: ACETAMINOPHEN
     Indication: PYREXIA
     Dosage: DOSAGE FORM: UNSPECIFIED
     Route: 065
     Dates: start: 2018, end: 2018
  7. MEFENAMIC ACID. [Suspect]
     Active Substance: MEFENAMIC ACID
     Indication: COUGH
  8. ZYRTEC [Suspect]
     Active Substance: CETIRIZINE HYDROCHLORIDE
     Indication: PYREXIA
     Dosage: DOSAGE FORM: UNKNOWN
     Route: 065
     Dates: start: 2018
  9. PARACETAMOL [Suspect]
     Active Substance: ACETAMINOPHEN
     Indication: LYMPHADENOPATHY
  10. AMOXICILLIN. [Suspect]
     Active Substance: AMOXICILLIN
     Indication: COUGH
  11. DICLOFENAC [Suspect]
     Active Substance: DICLOFENAC
     Indication: BACK PAIN
     Dosage: DOSAGE FORM: UNSPECIFIED
     Route: 065
     Dates: start: 201801, end: 2018
  12. ZYRTEC [Suspect]
     Active Substance: CETIRIZINE HYDROCHLORIDE
     Indication: OFF LABEL USE
  13. AMOXICILLIN. [Suspect]
     Active Substance: AMOXICILLIN
     Indication: PYREXIA
     Dosage: DOSAGE FORM: UNSPECIFIED
     Route: 065
     Dates: start: 2018, end: 2018
  14. AMOXICILLIN. [Suspect]
     Active Substance: AMOXICILLIN
     Indication: LYMPHADENOPATHY

REACTIONS (2)
  - Drug reaction with eosinophilia and systemic symptoms [Recovering/Resolving]
  - Off label use [Unknown]

NARRATIVE: CASE EVENT DATE: 2018
